FAERS Safety Report 9237041 (Version 3)
Quarter: 2013Q4

REPORT INFORMATION
  Report Type: Spontaneous
  Country: GB (occurrence: None)
  Receive Date: 20130415
  Receipt Date: 20131029
  Transmission Date: 20140711
  Serious: Yes (Life-Threatening)
  Sender: FDA-Public Use
  Company Number: AUR-APL-2013-03019

PATIENT
  Age: 55 Year
  Sex: Female
  Weight: 88.5 kg

DRUGS (6)
  1. MIRTAZAPINE (MIRTAZAPINE) [Suspect]
     Indication: PRODUCT USED FOR UNKNOWN INDICATION
     Dosage: UNKNOWN
     Dates: start: 20130321
  2. BENDROFLUMETHIAZIDE (BENDROFLUMETHIAZIDE) [Concomitant]
  3. DIXARIT (CLONIDINE HYDROCHLORIDE) [Concomitant]
  4. FEXOFENADINE [Concomitant]
  5. MICRONOR (NORETHISTERONE) [Concomitant]
  6. PREDNISOLONE (PREDNISOLONE) [Concomitant]

REACTIONS (2)
  - Angioedema [None]
  - Apparent life threatening event [None]
